FAERS Safety Report 17553735 (Version 1)
Quarter: 2020Q1

REPORT INFORMATION
  Report Type: Other
  Country: GB (occurrence: GB)
  Receive Date: 20200318
  Receipt Date: 20200318
  Transmission Date: 20200409
  Serious: No
  Sender: FDA-Public Use
  Company Number: GB-LUPIN PHARMACEUTICALS INC.-2019-05118

PATIENT
  Age: 45 Year
  Sex: Female
  Weight: 66.67 kg

DRUGS (2)
  1. CETIRIZINE DIHYDROCHLORIDE [Concomitant]
     Active Substance: CETIRIZINE HYDROCHLORIDE
     Indication: PRODUCT USED FOR UNKNOWN INDICATION
     Dosage: UNK
     Route: 065
  2. SERTRALINE [Suspect]
     Active Substance: SERTRALINE HYDROCHLORIDE
     Indication: SEASONAL AFFECTIVE DISORDER
     Dosage: 50 MILLIGRAM
     Route: 048
     Dates: start: 20141022, end: 20181212

REACTIONS (1)
  - Alcoholism [Recovered/Resolved]

NARRATIVE: CASE EVENT DATE: 2015
